FAERS Safety Report 9649694 (Version 1)
Quarter: 2013Q4

REPORT INFORMATION
  Report Type: Spontaneous
  Country: AU (occurrence: AU)
  Receive Date: 20131028
  Receipt Date: 20131028
  Transmission Date: 20140711
  Serious: Yes (Hospitalization, Other)
  Sender: FDA-Public Use
  Company Number: AU-ABBVIE-13P-008-1159612-00

PATIENT
  Age: 29 Year
  Sex: Female

DRUGS (13)
  1. VALPROATE SODIUM [Suspect]
     Indication: CONVULSION
     Route: 048
     Dates: end: 20030213
  2. VALPROATE SODIUM [Interacting]
     Route: 048
  3. STILNOX [Interacting]
     Indication: CONVULSION
     Route: 048
  4. QUETIAPINE [Interacting]
     Indication: PRODUCT USED FOR UNKNOWN INDICATION
     Route: 048
     Dates: end: 20030213
  5. QUETIAPINE [Interacting]
     Route: 048
  6. VENLAFAXINE [Interacting]
     Indication: PRODUCT USED FOR UNKNOWN INDICATION
     Route: 048
     Dates: end: 20030213
  7. VENLAFAXINE [Interacting]
     Route: 048
  8. PANADOL [Concomitant]
     Indication: PRODUCT USED FOR UNKNOWN INDICATION
  9. SANDOMIGRAN [Concomitant]
     Indication: PRODUCT USED FOR UNKNOWN INDICATION
  10. MERSYNDOL [Concomitant]
     Indication: PRODUCT USED FOR UNKNOWN INDICATION
  11. DIAZEPAM [Concomitant]
     Indication: PRODUCT USED FOR UNKNOWN INDICATION
  12. PHENERGAN [Concomitant]
     Indication: PRODUCT USED FOR UNKNOWN INDICATION
  13. VENTOLINE [Concomitant]
     Indication: PRODUCT USED FOR UNKNOWN INDICATION

REACTIONS (10)
  - Neuroleptic malignant syndrome [Unknown]
  - Drug interaction [Unknown]
  - Rhabdomyolysis [Unknown]
  - Convulsion [Unknown]
  - Depressed level of consciousness [Unknown]
  - Acidosis [Unknown]
  - Blood creatine phosphokinase increased [Unknown]
  - Hyperkalaemia [Unknown]
  - Pyrexia [Unknown]
  - Somnolence [Unknown]
